FAERS Safety Report 5602147-0 (Version None)
Quarter: 2008Q1

REPORT INFORMATION
  Report Type: 
  Country: None (occurrence: None)
  Receive Date: 20080125
  Receipt Date: 20080116
  Transmission Date: 20080703
  Serious: Yes (Hospitalization)
  Sender: FDA-Public Use
  Company Number: PHNU2008DE00608

PATIENT
  Sex: Female

DRUGS (6)
  1. DIOVAN [Suspect]
     Indication: HYPERTENSION
     Dosage: 160 MG/DAY
     Route: 048
     Dates: end: 20071201
  2. DIOVAN [Suspect]
     Dosage: 240 MG/DAY
     Route: 048
     Dates: start: 20071201
  3. HMG COA REDUCTASE INHIBITORS [Suspect]
     Dosage: UNK, UNK
     Route: 065
     Dates: start: 20071201, end: 20071201
  4. BETA BLOCKING AGENTS [Concomitant]
     Route: 065
  5. MARCUMAR [Concomitant]
     Dosage: UNK, PRN
     Route: 065
  6. SPIRONOLACTONE [Concomitant]
     Route: 065
     Dates: end: 20071201

REACTIONS (5)
  - ALANINE AMINOTRANSFERASE INCREASED [None]
  - ASPARTATE AMINOTRANSFERASE INCREASED [None]
  - BLOOD CREATINE PHOSPHOKINASE INCREASED [None]
  - BLOOD LACTATE DEHYDROGENASE INCREASED [None]
  - GAMMA-GLUTAMYLTRANSFERASE INCREASED [None]
